FAERS Safety Report 25085965 (Version 1)
Quarter: 2025Q1

REPORT INFORMATION
  Report Type: Spontaneous
  Country: US (occurrence: US)
  Receive Date: 20250317
  Receipt Date: 20250317
  Transmission Date: 20250408
  Serious: No
  Sender: BAUSCH AND LOMB
  Company Number: US-BAUSCHBL-2024BNL038495

PATIENT
  Age: 71 Year
  Sex: Female

DRUGS (1)
  1. XIIDRA [Suspect]
     Active Substance: LIFITEGRAST
     Indication: Macular degeneration
     Dosage: ONCE OR TWICE A WEEK
     Route: 047
     Dates: start: 2024

REACTIONS (6)
  - Taste disorder [Recovered/Resolved]
  - Vision blurred [Recovered/Resolved]
  - Eye irritation [Recovered/Resolved]
  - Inability to afford medication [Unknown]
  - Product packaging quantity issue [Unknown]
  - Intentional product use issue [Recovered/Resolved]
